FAERS Safety Report 9665953 (Version 2)
Quarter: 2013Q4

REPORT INFORMATION
  Report Type: Report from Study
  Country: US (occurrence: US)
  Receive Date: 20131104
  Receipt Date: 20131226
  Transmission Date: 20140711
  Serious: Yes (Death, Life-Threatening, Hospitalization)
  Sender: FDA-Public Use
  Company Number: US-MERCK-1310USA013416

PATIENT
  Age: 33 Year
  Sex: Male
  Weight: 91.9 kg

DRUGS (12)
  1. VORINOSTAT [Suspect]
     Indication: GLIOBLASTOMA MULTIFORME
     Dosage: 400 MG, QD
     Route: 048
     Dates: start: 20131009, end: 20131015
  2. VORINOSTAT [Suspect]
     Dosage: 400 MG, QD
     Route: 048
     Dates: start: 20131023, end: 20131024
  3. BEVACIZUMAB [Suspect]
     Indication: GLIOBLASTOMA MULTIFORME
     Dosage: 10 MG/KG, Q2W
     Dates: start: 20131009, end: 20131023
  4. KEPPRA [Concomitant]
     Dosage: 1000 MG, BID
  5. MORPHINE [Concomitant]
     Dosage: 20 MG, TID
  6. OXYCODONE [Concomitant]
     Dosage: 30 MG, 5 TIMES PER DAY
  7. PROMETHAZINE [Concomitant]
     Dosage: 25 MG, QD
  8. SULFAMETHOXAZOLE (+) TRIMETHOPRIM [Concomitant]
     Dosage: 800/160 MG, BID
  9. DECADRON [Concomitant]
     Dosage: 4 MG, BID
  10. FLUCONAZOLE [Concomitant]
     Dosage: 100 MG, QD
  11. NYSTATIN [Concomitant]
     Dosage: 100000 UNIT/ML QID
  12. PROTONIX [Concomitant]
     Dosage: 40 MG, QD

REACTIONS (2)
  - Brain herniation [Fatal]
  - Brain oedema [Unknown]
